FAERS Safety Report 4392624-5 (Version None)
Quarter: 2004Q3

REPORT INFORMATION
  Report Type: 
  Country: None (occurrence: None)
  Receive Date: 20040702
  Receipt Date: 20040623
  Transmission Date: 20050211
  Serious: Yes (Life-Threatening, Other)
  Sender: FDA-Public Use
  Company Number: FRWYE848524JUN04

PATIENT
  Age: 49 Year
  Sex: Male

DRUGS (6)
  1. OXAZEPAM [Suspect]
     Dosage: 50 MG 3X PER 1 DAY
     Route: 048
     Dates: start: 20040330
  2. TRANXENE [Suspect]
     Route: 048
     Dates: end: 20040330
  3. ZYPREXA [Suspect]
     Indication: PSYCHOTIC DISORDER
     Route: 051
     Dates: start: 20040401, end: 20040401
  4. FULMICORT (BUDESONIDE) [Concomitant]
  5. DOGMATIL (SULPIRIDE) [Concomitant]
  6. FORADIL [Concomitant]

REACTIONS (1)
  - GRAND MAL CONVULSION [None]
